FAERS Safety Report 5237223-8 (Version None)
Quarter: 2007Q1

REPORT INFORMATION
  Report Type: 
  Country: None (occurrence: None)
  Receive Date: 20061208
  Receipt Date: 20050524
  Transmission Date: 20070707
  Serious: Yes (Other)
  Sender: FDA-Public Use
  Company Number: 2005UW08056

PATIENT
  Age: 58 Year
  Sex: Male
  Weight: 104.32 kg

DRUGS (9)
  1. CRESTOR [Suspect]
     Indication: BLOOD CHOLESTEROL INCREASED
     Dosage: 10 MG PO
     Route: 048
     Dates: start: 20040101
  2. COREG [Concomitant]
  3. PLAVIX [Concomitant]
  4. LASIX [Concomitant]
  5. K-DUR 10 [Concomitant]
  6. IMDUR [Concomitant]
  7. ZESTRIL [Concomitant]
  8. NEXIUM [Concomitant]
  9. ASPIRIN [Concomitant]

REACTIONS (1)
  - HEPATIC PAIN [None]
